FAERS Safety Report 8309821-6 (Version None)
Quarter: 2012Q2

REPORT INFORMATION
  Report Type: 
  Country: None (occurrence: None)
  Receive Date: 20120425
  Receipt Date: 20120419
  Transmission Date: 20120825
  Serious: Yes (Other)
  Sender: FDA-Public Use
  Company Number: PHHY2012AU033757

PATIENT
  Sex: Female

DRUGS (1)
  1. FEMARA [Suspect]
     Dosage: 1 DF DAILY
     Route: 048
     Dates: start: 20090401

REACTIONS (14)
  - DEPRESSION [None]
  - DRY MOUTH [None]
  - PALPITATIONS [None]
  - CONSTIPATION [None]
  - SLEEP DISORDER [None]
  - PAIN IN EXTREMITY [None]
  - ANXIETY [None]
  - BONE DENSITY DECREASED [None]
  - CONCOMITANT DISEASE AGGRAVATED [None]
  - HOT FLUSH [None]
  - VITAMIN D DECREASED [None]
  - ARTHRITIS [None]
  - HYPERHIDROSIS [None]
  - DIARRHOEA [None]
